FAERS Safety Report 13719422 (Version 2)
Quarter: 2017Q3

REPORT INFORMATION
  Report Type: Spontaneous
  Country: US (occurrence: US)
  Receive Date: 20170705
  Receipt Date: 20170720
  Transmission Date: 20171127
  Serious: Yes (Hospitalization)
  Sender: FDA-Public Use
  Company Number: US-CELGENEUS-USA-20170609452

PATIENT
  Age: 25 Year
  Sex: Female

DRUGS (3)
  1. VIDAZA [Suspect]
     Active Substance: AZACITIDINE
     Indication: ACUTE MYELOID LEUKAEMIA
     Dosage: 75 MILLIGRAM/SQ. METER
     Route: 041
     Dates: start: 20170601
  2. NIVOLUMAB [Suspect]
     Active Substance: NIVOLUMAB
     Indication: ACUTE MYELOID LEUKAEMIA
     Dosage: 3 MILLIGRAM/KILOGRAM
     Route: 065
     Dates: start: 20170601
  3. IPILIMUMAB [Suspect]
     Active Substance: IPILIMUMAB
     Indication: ACUTE MYELOID LEUKAEMIA
     Route: 065
     Dates: start: 20170601

REACTIONS (4)
  - Haemorrhoidal haemorrhage [Unknown]
  - Pyrexia [Unknown]
  - Infection [Recovering/Resolving]
  - Anal fistula [Unknown]

NARRATIVE: CASE EVENT DATE: 20170619
